FAERS Safety Report 9204069 (Version 1)
Quarter: 2013Q2

REPORT INFORMATION
  Report Type: Spontaneous
  Country: US (occurrence: US)
  Receive Date: 20130402
  Receipt Date: 20130402
  Transmission Date: 20140414
  Serious: Yes (Other)
  Sender: FDA-Public Use
  Company Number: US-BAYER-2013-038285

PATIENT
  Age: 54 Year
  Sex: Female
  Weight: 102.49 kg

DRUGS (2)
  1. ALEVE CAPLET [Suspect]
     Dosage: 2 DF, ONCE
     Route: 048
     Dates: start: 20130321, end: 20130321
  2. THYROID THERAPY [Concomitant]

REACTIONS (9)
  - Drug hypersensitivity [Recovering/Resolving]
  - Urticaria [Recovering/Resolving]
  - Erythema [Recovering/Resolving]
  - Rash [Recovering/Resolving]
  - Urticaria [Recovering/Resolving]
  - Erythema [Recovering/Resolving]
  - Ocular hyperaemia [Recovering/Resolving]
  - Eye swelling [Recovering/Resolving]
  - Skin exfoliation [Recovering/Resolving]
